FAERS Safety Report 16943324 (Version 2)
Quarter: 2020Q1

REPORT INFORMATION
  Report Type: Report from Study
  Country: US (occurrence: US)
  Receive Date: 20191022
  Receipt Date: 20200318
  Transmission Date: 20200409
  Serious: Yes (Other)
  Sender: FDA-Public Use
  Company Number: NVSC2019US007415

PATIENT
  Age: 20 Year
  Sex: Female

DRUGS (3)
  1. KYMRIAH [Suspect]
     Active Substance: TISAGENLECLEUCEL
     Indication: LYMPHOCYTIC LEUKAEMIA
     Dosage: UNK, ONCE/SINGLE
     Route: 041
     Dates: start: 2018
  2. FLUDARABINE [Concomitant]
     Active Substance: FLUDARABINE PHOSPHATE
     Indication: CHEMOTHERAPY
     Route: 065
  3. CYCLOPHOSPHAMIDE. [Concomitant]
     Active Substance: CYCLOPHOSPHAMIDE
     Indication: CHEMOTHERAPY
     Route: 065

REACTIONS (5)
  - Neutrophil count increased [Recovered/Resolved]
  - Non-Hodgkin^s lymphoma [Unknown]
  - Hypogammaglobulinaemia [Unknown]
  - Haemoglobin increased [Unknown]
  - Lymphocyte count decreased [Recovered/Resolved]
